FAERS Safety Report 5230352-4 (Version None)
Quarter: 2007Q1

REPORT INFORMATION
  Report Type: 
  Country: None (occurrence: None)
  Receive Date: 20070206
  Receipt Date: 20070129
  Transmission Date: 20070707
  Serious: Yes (Death)
  Sender: FDA-Public Use
  Company Number: US-JNJFOC-20070102729

PATIENT
  Sex: Female

DRUGS (4)
  1. TOPAMAX [Suspect]
     Dosage: 100 MG IN AM AND 200 MG HS
  2. TOPAMAX [Suspect]
     Indication: MIGRAINE PROPHYLAXIS
  3. INDERAL [Concomitant]
  4. DITROPAN [Concomitant]

REACTIONS (1)
  - ACUTE RESPIRATORY DISTRESS SYNDROME [None]
